FAERS Safety Report 19264906 (Version 5)
Quarter: 2022Q2

REPORT INFORMATION
  Report Type: Spontaneous
  Country: US (occurrence: US)
  Receive Date: 20210517
  Receipt Date: 20220419
  Transmission Date: 20220720
  Serious: Yes (Other)
  Sender: FDA-Public Use
  Company Number: US-PFIZER INC-2021503760

PATIENT
  Age: 47 Year
  Sex: Female

DRUGS (15)
  1. IBRANCE [Suspect]
     Active Substance: PALBOCICLIB
     Dosage: 125 MG
     Dates: start: 20210413, end: 20210503
  2. IBRANCE [Suspect]
     Active Substance: PALBOCICLIB
     Dosage: 125 MG, CYCLIC
     Dates: start: 20210418, end: 20210501
  3. IBRANCE [Suspect]
     Active Substance: PALBOCICLIB
     Dosage: 125 MG
     Dates: start: 20210419
  4. IBRANCE [Suspect]
     Active Substance: PALBOCICLIB
     Dosage: 125 MG, CYCLIC
     Dates: start: 20210423
  5. IBRANCE [Suspect]
     Active Substance: PALBOCICLIB
     Dosage: 125 MG
     Dates: start: 20210508
  6. IBRANCE [Suspect]
     Active Substance: PALBOCICLIB
     Dosage: 125 MG (21 DAYS ON AND 7 DAYS OFF)
     Route: 048
     Dates: start: 20211018, end: 202201
  7. IBRANCE [Suspect]
     Active Substance: PALBOCICLIB
     Dosage: 125 MG (21 DAYS ON AND 7 DAYS OFF)
     Route: 048
     Dates: start: 2022
  8. LISINOPRIL [Concomitant]
     Active Substance: LISINOPRIL
     Dosage: UNK
  9. NITROGLYCERIN [Concomitant]
     Active Substance: NITROGLYCERIN
     Dosage: UNK
  10. ATORVASTATIN CALCIUM [Concomitant]
     Active Substance: ATORVASTATIN CALCIUM
     Dosage: UNK
  11. CARVEDILOL [Concomitant]
     Active Substance: CARVEDILOL
     Dosage: UNK
  12. ASPIRIN [Concomitant]
     Active Substance: ASPIRIN
     Dosage: UNK
  13. LEVOTHYROXINE SODIUM [Concomitant]
     Active Substance: LEVOTHYROXINE SODIUM
     Dosage: UNK
  14. LETROZOLE [Concomitant]
     Active Substance: LETROZOLE
     Dosage: UNK
  15. VITAMIN D2 [Concomitant]
     Active Substance: ERGOCALCIFEROL
     Dosage: UNK

REACTIONS (15)
  - Thrombosis [Unknown]
  - Dyspnoea [Unknown]
  - Chills [Unknown]
  - Hip surgery [Unknown]
  - Night sweats [Unknown]
  - Stomatitis [Recovered/Resolved]
  - Headache [Unknown]
  - Dyspepsia [Unknown]
  - Insomnia [Unknown]
  - Gingival pain [Recovered/Resolved]
  - Dyschezia [Unknown]
  - Vision blurred [Unknown]
  - White blood cell count decreased [Unknown]
  - Lymphadenopathy [Recovering/Resolving]
  - Dysphagia [Unknown]

NARRATIVE: CASE EVENT DATE: 20210703
